FAERS Safety Report 15936386 (Version 1)
Quarter: 2019Q1

REPORT INFORMATION
  Report Type: Spontaneous
  Country: US (occurrence: US)
  Receive Date: 20190118
  Receipt Date: 20190118
  Transmission Date: 20190417
  Serious: Yes (Hospitalization)
  Sender: FDA-Public Use
  Company Number: None

PATIENT
  Age: 84 Year
  Sex: Female

DRUGS (1)
  1. CAPECITABINE TAB [Suspect]
     Active Substance: CAPECITABINE
     Dosage: ?          OTHER FREQUENCY:BIDX14 DAYS ;?
     Route: 048
     Dates: start: 20180314

REACTIONS (1)
  - Therapy cessation [None]
